FAERS Safety Report 15196294 (Version 2)
Quarter: 2018Q3

REPORT INFORMATION
  Report Type: Spontaneous
  Country: US (occurrence: US)
  Receive Date: 20180725
  Receipt Date: 20180820
  Transmission Date: 20181010
  Serious: Yes (Hospitalization)
  Sender: FDA-Public Use
  Company Number: US-PFIZER INC-2018296280

PATIENT
  Age: 55 Year
  Sex: Female
  Weight: 49.89 kg

DRUGS (2)
  1. XALKORI [Suspect]
     Active Substance: CRIZOTINIB
     Indication: LUNG CANCER METASTATIC
     Dosage: 250 MG, 2X/DAY (BID)
     Route: 048
     Dates: start: 20180714
  2. XALKORI [Suspect]
     Active Substance: CRIZOTINIB
     Indication: PANCREATIC CARCINOMA METASTATIC

REACTIONS (4)
  - Dehydration [Unknown]
  - Constipation [Unknown]
  - Nausea [Unknown]
  - Vomiting [Unknown]
